FAERS Safety Report 5443333-2 (Version None)
Quarter: 2007Q3

REPORT INFORMATION
  Report Type: 
  Country: None (occurrence: None)
  Receive Date: 20070905
  Receipt Date: 20070830
  Transmission Date: 20080115
  Serious: Yes (Other)
  Sender: FDA-Public Use
  Company Number: JP-ASTRAZENECA-2007AP05457

PATIENT
  Age: 44 Year
  Sex: Female

DRUGS (2)
  1. ZOLADEX [Suspect]
     Indication: UTERINE LEIOMYOMA
     Route: 058
     Dates: start: 20070802, end: 20070802
  2. ZOLADEX [Suspect]
     Route: 058
     Dates: start: 20070830, end: 20070830

REACTIONS (1)
  - SUBCUTANEOUS HAEMATOMA [None]
